FAERS Safety Report 25440304 (Version 3)
Quarter: 2025Q3

REPORT INFORMATION
  Report Type: Spontaneous
  Country: US (occurrence: US)
  Receive Date: 20250616
  Receipt Date: 20250714
  Transmission Date: 20251020
  Serious: No
  Sender: PFIZER
  Company Number: US-PFIZER INC-PV202400077567

PATIENT
  Age: 11 Year
  Sex: Male
  Weight: 28.9 kg

DRUGS (5)
  1. NGENLA [Suspect]
     Active Substance: SOMATROGON-GHLA
     Indication: Hypopituitarism
     Dates: start: 202407, end: 202410
  2. NGENLA [Suspect]
     Active Substance: SOMATROGON-GHLA
     Indication: Growth hormone deficiency
     Dosage: 19 MG, WEEKLY (0.66MG/KG/WEEK)
     Route: 058
  3. NGENLA [Suspect]
     Active Substance: SOMATROGON-GHLA
     Dosage: 22.5 MG, WEEKLY (0.66MG/KG/WEEK)
     Route: 058
  4. NGENLA [Suspect]
     Active Substance: SOMATROGON-GHLA
     Dates: start: 202503
  5. FOCALIN [Concomitant]
     Active Substance: DEXMETHYLPHENIDATE HYDROCHLORIDE
     Indication: Attention deficit hyperactivity disorder

REACTIONS (2)
  - Fear of injection [Recovered/Resolved]
  - Anxiety [Recovered/Resolved]
